FAERS Safety Report 10420389 (Version 1)
Quarter: 2014Q3

REPORT INFORMATION
  Report Type: Spontaneous
  Country: US (occurrence: None)
  Receive Date: 20140701
  Receipt Date: 20140701
  Transmission Date: 20150326
  Serious: No
  Sender: FDA-Public Use
  Company Number: 1000066591

PATIENT
  Age: 77 Year
  Sex: Male

DRUGS (15)
  1. LINZESS [Suspect]
     Active Substance: LINACLOTIDE
     Indication: CONSTIPATION
     Route: 048
     Dates: start: 20140414
  2. LAMICTAL [Concomitant]
     Active Substance: LAMOTRIGINE
  3. ASPIRIN (ACETYLSALICYLIC ACID) [Concomitant]
     Active Substance: ASPIRIN
  4. MVI (VITAMINS NOS) [Concomitant]
  5. LORAZEPAM. [Concomitant]
     Active Substance: LORAZEPAM
  6. CARDURA [Concomitant]
     Active Substance: DOXAZOSIN MESYLATE
  7. MELATONIN [Concomitant]
     Active Substance: MELATONIN
  8. LOPRESSOR [Concomitant]
     Active Substance: METOPROLOL TARTRATE
  9. VITAMIN C [Concomitant]
     Active Substance: ASCORBIC ACID
  10. HYDROCHLOROTHIZAIDE [Concomitant]
  11. VITAMIN D [Concomitant]
     Active Substance: CHOLECALCIFEROL
  12. MAGNESIUM [Concomitant]
     Active Substance: MAGNESIUM
  13. TRAMADOL [Concomitant]
     Active Substance: TRAMADOL
  14. SUNTHROID (LEVOTHYROXINE SODIUM) [Concomitant]
  15. LIPITOR [Concomitant]
     Active Substance: ATORVASTATIN CALCIUM

REACTIONS (4)
  - Diarrhoea [None]
  - Urine flow decreased [None]
  - Faecal volume increased [None]
  - Faeces hard [None]

NARRATIVE: CASE EVENT DATE: 201404
